FAERS Safety Report 13921323 (Version 1)
Quarter: 2017Q3

REPORT INFORMATION
  Report Type: Spontaneous
  Country: ES (occurrence: ES)
  Receive Date: 20170830
  Receipt Date: 20170830
  Transmission Date: 20171127
  Serious: Yes (Other)
  Sender: FDA-Public Use
  Company Number: ES-ABBVIE-17P-144-2087371-00

PATIENT
  Age: 21 Year
  Sex: Male

DRUGS (3)
  1. DEPAKINE CHRONO [Suspect]
     Active Substance: VALPROATE SODIUM
     Dosage: EXTENDED RELEASE
     Route: 048
     Dates: start: 20170710
  2. IBUPROFEN. [Concomitant]
     Active Substance: IBUPROFEN
     Indication: PRODUCT USED FOR UNKNOWN INDICATION
  3. DEPAKINE CHRONO [Suspect]
     Active Substance: VALPROATE SODIUM
     Indication: PRODUCT USED FOR UNKNOWN INDICATION
     Dosage: EXTENDED RELEASE
     Route: 048
     Dates: end: 20170709

REACTIONS (4)
  - Drug ineffective [Unknown]
  - Medication residue present [Unknown]
  - Off label use [Unknown]
  - Epilepsy [Unknown]

NARRATIVE: CASE EVENT DATE: 2017
